FAERS Safety Report 4954604-8 (Version None)
Quarter: 2006Q1

REPORT INFORMATION
  Report Type: 
  Country: None (occurrence: None)
  Receive Date: 20060327
  Receipt Date: 20060316
  Transmission Date: 20060701
  Serious: Yes (Hospitalization)
  Sender: FDA-Public Use
  Company Number: AU-ROCHE-441032

PATIENT
  Age: 39 Year
  Sex: Male

DRUGS (4)
  1. MYCOPHENOLATE MOFETIL [Suspect]
     Indication: DRUG USE FOR UNKNOWN INDICATION
     Route: 065
  2. DACLIZUMAB [Suspect]
     Indication: DRUG USE FOR UNKNOWN INDICATION
     Route: 065
  3. CORTICOSTEROID NOS [Suspect]
     Route: 065
  4. RAPAMUNE [Suspect]
     Route: 048
     Dates: start: 20050407

REACTIONS (3)
  - DEEP VEIN THROMBOSIS [None]
  - PREDISPOSITION TO DISEASE [None]
  - PULMONARY EMBOLISM [None]
